FAERS Safety Report 4969729-0 (Version None)
Quarter: 2006Q2

REPORT INFORMATION
  Report Type: 
  Country: None (occurrence: None)
  Receive Date: 20060411
  Receipt Date: 20060403
  Transmission Date: 20061013
  Serious: Yes (Other)
  Sender: FDA-Public Use
  Company Number: CA-SANOFI-SYNTHELABO-F01200600934

PATIENT
  Sex: Male

DRUGS (4)
  1. OXALIPLATIN [Suspect]
     Indication: COLON CANCER
     Route: 042
     Dates: start: 20050705, end: 20050705
  2. FLUOROURACIL [Suspect]
     Dosage: 590 MG 1 X PER 2 WEEK
     Route: 042
     Dates: start: 20050705, end: 20050706
  3. LEUCOVORIN [Suspect]
     Dosage: 294 MG 1 X PER 2 WEEK
     Route: 042
     Dates: start: 20050705, end: 20050706
  4. SYMBICORT [Concomitant]
     Dosage: UNKNOWN
     Route: 065
     Dates: start: 20000615

REACTIONS (1)
  - MESENTERIC VEIN THROMBOSIS [None]
